FAERS Safety Report 9251441 (Version 1)
Quarter: 2013Q2

REPORT INFORMATION
  Report Type: Spontaneous
  Country: DE (occurrence: DE)
  Receive Date: 20130424
  Receipt Date: 20130424
  Transmission Date: 20140414
  Serious: Yes (Life-Threatening, Hospitalization, Other)
  Sender: FDA-Public Use
  Company Number: DE-ELI_LILLY_AND_COMPANY-DE201304005149

PATIENT
  Age: 51 Year
  Sex: Male

DRUGS (3)
  1. ZYPREXA [Suspect]
     Indication: SCHIZOPHRENIA
     Dosage: 20 MG, QD
     Route: 048
     Dates: start: 2011
  2. GLIANIMON [Concomitant]
     Dosage: 2 MG, UNK
  3. NEUROCIL [Concomitant]
     Dosage: 200 MG, EACH EVENING

REACTIONS (2)
  - Cardio-respiratory arrest [Not Recovered/Not Resolved]
  - Hypothermia [Not Recovered/Not Resolved]
